FAERS Safety Report 6256395-X (Version None)
Quarter: 2009Q3

REPORT INFORMATION
  Report Type: 
  Country: None (occurrence: None)
  Receive Date: 20090706
  Receipt Date: 20090626
  Transmission Date: 20100115
  Serious: Yes (Hospitalization)
  Sender: FDA-Public Use
  Company Number: AU-CELGENEUS-008-20785-09060197

PATIENT
  Sex: Male
  Weight: 89 kg

DRUGS (16)
  1. THALIDOMIDE [Suspect]
     Route: 048
     Dates: start: 20090528, end: 20090530
  2. VIDAZA [Suspect]
     Route: 058
     Dates: start: 20090528, end: 20090530
  3. METFORMIN HCL [Concomitant]
     Route: 065
     Dates: start: 20030101
  4. DIAMICRON [Concomitant]
     Route: 065
     Dates: start: 20030101
  5. AMLODIPINE [Concomitant]
     Indication: HYPERTENSION
     Route: 065
     Dates: start: 20040101
  6. ATENOLOL [Concomitant]
     Indication: HYPERTENSION
     Route: 065
     Dates: start: 20020101
  7. MONOPLUS [Concomitant]
     Indication: HYPERTENSION
     Route: 065
     Dates: start: 20040101
  8. FERROGRAD [Concomitant]
     Indication: IRON DEFICIENCY
     Route: 065
     Dates: start: 20090301
  9. AGAROL [Concomitant]
     Indication: CONSTIPATION
     Route: 065
     Dates: start: 20090505, end: 20090505
  10. TELFAST [Concomitant]
     Route: 065
     Dates: start: 20090502
  11. SOFRADEX EAR DROPS [Concomitant]
     Indication: OTITIS EXTERNA
     Route: 065
     Dates: start: 20090521, end: 20090525
  12. NITROGLYCERIN [Concomitant]
     Indication: PROPHYLAXIS
     Route: 065
     Dates: start: 20040101
  13. NITROGLYCERIN [Concomitant]
     Indication: ACUTE MYOCARDIAL INFARCTION
     Route: 065
  14. ASPIRIN [Concomitant]
     Indication: ACUTE MYOCARDIAL INFARCTION
     Route: 065
     Dates: start: 20040101
  15. ASPIRIN [Concomitant]
     Indication: CHEST PAIN
  16. DURIDE [Concomitant]
     Indication: ACUTE MYOCARDIAL INFARCTION
     Route: 065
     Dates: start: 20040101

REACTIONS (2)
  - ACUTE MYOCARDIAL INFARCTION [None]
  - STAPHYLOCOCCAL INFECTION [None]
